FAERS Safety Report 4316008-0 (Version None)
Quarter: 2004Q1

REPORT INFORMATION
  Report Type: 
  Country: None (occurrence: None)
  Receive Date: 20040310
  Receipt Date: 20040226
  Transmission Date: 20041129
  Serious: Yes (Hospitalization)
  Sender: FDA-Public Use
  Company Number: 03P-056-0245202-00

PATIENT
  Age: 72 Year
  Sex: Male

DRUGS (11)
  1. DEPAKOTE [Suspect]
     Indication: BIPOLAR DISORDER
     Dosage: 250 MG, 2 IN 1 D, PER ORAL
     Route: 048
     Dates: start: 20031029, end: 20031126
  2. VIT K ANTAGONISTS [Concomitant]
  3. ACENOCOUMAROL (ACENOCOUMAROL) [Concomitant]
  4. SECTRAL [Concomitant]
  5. FUROSEMIDE [Concomitant]
  6. ESOMEPRAZOLE [Concomitant]
  7. HYDROXYZINE HYDROCHLORIDE [Concomitant]
  8. RAMIPRIL [Concomitant]
  9. PAROXETINE HCL [Concomitant]
  10. POTASSIUM [Concomitant]
  11. ACEBUTOLOL [Concomitant]

REACTIONS (5)
  - GASTROINTESTINAL DISORDER [None]
  - HEPATIC FAILURE [None]
  - NAUSEA [None]
  - PROTHROMBIN TIME RATIO DECREASED [None]
  - VOMITING [None]
